FAERS Safety Report 24432331 (Version 1)
Quarter: 2024Q4

REPORT INFORMATION
  Report Type: Spontaneous
  Country: NL (occurrence: NL)
  Receive Date: 20241014
  Receipt Date: 20241014
  Transmission Date: 20250115
  Serious: Yes (Hospitalization)
  Sender: BOEHRINGER INGELHEIM
  Company Number: None

PATIENT
  Age: 56 Year
  Sex: Female
  Weight: 50.6 kg

DRUGS (3)
  1. IPRATROPIUM BROMIDE [Suspect]
     Active Substance: IPRATROPIUM BROMIDE
     Indication: Chronic obstructive pulmonary disease
     Dosage: 1 DOSAGE FORM?IF NECESSARY 500 MICROGRAM, IF NECESSARY REPEAT
     Dates: start: 20240921, end: 20240921
  2. IPRATROPIUM BROMIDE [Suspect]
     Active Substance: IPRATROPIUM BROMIDE
     Indication: Asthma
  3. SALBUTAMOL VERNEVELVLST 1MG/ML / Brand name not specified [Concomitant]
     Indication: Product used for unknown indication
     Dosage: VERNEVELVLOEISTOF, 1 MG/ML (MILLIGRAM PER MILLILITER)

REACTIONS (3)
  - Hyperhidrosis [Recovered/Resolved]
  - Dyspnoea [Recovered/Resolved]
  - Palpitations [Recovered/Resolved]
